FAERS Safety Report 11250531 (Version 3)
Quarter: 2015Q3

REPORT INFORMATION
  Report Type: Spontaneous
  Country: US (occurrence: US)
  Receive Date: 20150708
  Receipt Date: 20150825
  Transmission Date: 20151125
  Serious: No
  Sender: FDA-Public Use
  Company Number: US-VIIV HEALTHCARE LIMITED-US2015083949

PATIENT
  Sex: Male

DRUGS (4)
  1. SELZENTRY [Suspect]
     Active Substance: MARAVIROC
     Indication: HIV INFECTION
     Dosage: 600 MG, BID
     Route: 048
  2. PREZISTA [Concomitant]
     Active Substance: DARUNAVIR ETHANOLATE
  3. ISENTRESS [Concomitant]
     Active Substance: RALTEGRAVIR POTASSIUM
  4. SELZENTRY [Suspect]
     Active Substance: MARAVIROC
     Dosage: 300 MG, QID
     Route: 048
     Dates: start: 2015

REACTIONS (2)
  - Labile hypertension [Unknown]
  - Intentional product misuse [Unknown]
